FAERS Safety Report 7421560-2 (Version None)
Quarter: 2011Q2

REPORT INFORMATION
  Report Type: 
  Country: None (occurrence: None)
  Receive Date: 20110418
  Receipt Date: 20110418
  Transmission Date: 20111010
  Serious: Yes (Death)
  Sender: FDA-Public Use
  Company Number: GR-ABBOTT-11P-066-0719409-00

PATIENT
  Age: 43 Year
  Sex: Male
  Weight: 105 kg

DRUGS (1)
  1. HUMIRA [Suspect]
     Indication: PSORIASIS
     Dates: end: 20110417

REACTIONS (1)
  - ROAD TRAFFIC ACCIDENT [None]
